FAERS Safety Report 8094602-1 (Version None)
Quarter: 2011Q4

REPORT INFORMATION
  Report Type: 
  Country: None (occurrence: None)
  Receive Date: 20111222
  Receipt Date: 20111026
  Transmission Date: 20120403
  Serious: Yes (Hospitalization)
  Sender: FDA-Public Use
  Company Number: UTC-010580

PATIENT
  Age: 52 Year
  Sex: Female
  Weight: 133.6 kg

DRUGS (4)
  1. COUMADIN [Concomitant]
  2. TYVASO [Suspect]
     Indication: PULMONARY ARTERIAL HYPERTENSION
     Dosage: 18 - 54 MICROGRAMS (4 IN 1 D), INHALATION
     Route: 055
     Dates: start: 20100710
  3. LETAIRIS (AMBRISENTAN) (UNKNOWN) [Concomitant]
  4. REVATIO (SILDENAFIL CITRATE) (UNKNOWN) [Concomitant]

REACTIONS (2)
  - JOINT INJURY [None]
  - ROAD TRAFFIC ACCIDENT [None]
